FAERS Safety Report 20585749 (Version 1)
Quarter: 2022Q1

REPORT INFORMATION
  Report Type: Spontaneous
  Country: US (occurrence: US)
  Receive Date: 20220312
  Receipt Date: 20220312
  Transmission Date: 20220423
  Serious: Yes (Other)
  Sender: FDA-Public Use
  Company Number: US-TEVA-2022-US-2014488

PATIENT
  Age: 49 Year
  Sex: Male

DRUGS (1)
  1. ADDERALL [Suspect]
     Active Substance: AMPHETAMINE ASPARTATE\AMPHETAMINE SULFATE\DEXTROAMPHETAMINE SACCHARATE\DEXTROAMPHETAMINE SULFATE
     Route: 065
     Dates: start: 1992

REACTIONS (3)
  - Loss of consciousness [Recovered/Resolved]
  - Product taste abnormal [Not Recovered/Not Resolved]
  - Product prescribing error [Unknown]

NARRATIVE: CASE EVENT DATE: 20211201
